FAERS Safety Report 5123405-2 (Version None)
Quarter: 2006Q4

REPORT INFORMATION
  Report Type: 
  Country: None (occurrence: None)
  Receive Date: 20061005
  Receipt Date: 20060929
  Transmission Date: 20070319
  Serious: Yes (Other)
  Sender: FDA-Public Use
  Company Number: HQWYE404129SEP06

PATIENT
  Age: 82 Year
  Sex: Male

DRUGS (5)
  1. CORDAREX (AMIODARONE , TABLET) [Suspect]
     Indication: ATRIAL FIBRILLATION
     Dosage: ORAL
     Route: 048
     Dates: start: 20060801
  2. BLOPRESS (CANDESARTAN CILEXETIL) [Concomitant]
  3. BELOC-ZOC FORTE (METOPROLOL SUCCINATE) [Concomitant]
  4. ESIDRIX [Concomitant]
  5. RAMIPRIL [Concomitant]

REACTIONS (3)
  - DIARRHOEA [None]
  - HYPERAMYLASAEMIA [None]
  - PANCREATIC INSUFFICIENCY [None]
